FAERS Safety Report 8886141 (Version 1)
Quarter: 2012Q4

REPORT INFORMATION
  Report Type: 
  Country: US (occurrence: US)
  Receive Date: 20121105
  Receipt Date: 20121105
  Transmission Date: 20130627
  Serious: No
  Sender: FDA-Public Use
  Company Number: US-BAYER-2012-115401

PATIENT
  Sex: Female

DRUGS (1)
  1. AVELOX [Suspect]
     Indication: TOOTH ABSCESS
     Dosage: 1 DF, QD
     Route: 048

REACTIONS (1)
  - Nausea [Recovered/Resolved]
